FAERS Safety Report 16444672 (Version 1)
Quarter: 2019Q2

REPORT INFORMATION
  Report Type: Spontaneous
  Country: JO (occurrence: JO)
  Receive Date: 20190618
  Receipt Date: 20190618
  Transmission Date: 20190711
  Serious: Yes (Hospitalization)
  Sender: FDA-Public Use
  Company Number: JO-CERECOR, INC.-2019CER00090

PATIENT
  Age: 16 Year
  Sex: Female
  Weight: 75 kg

DRUGS (2)
  1. PREDNISOLONE. [Suspect]
     Active Substance: PREDNISOLONE
     Indication: CONNECTIVE TISSUE DISORDER
     Dosage: 16 MG, 2X/DAY
     Route: 048
     Dates: start: 201304, end: 201312
  2. PREDNISOLONE. [Suspect]
     Active Substance: PREDNISOLONE
     Dosage: 10 MG, 1X/DAY
     Route: 048
     Dates: start: 201312, end: 201406

REACTIONS (1)
  - Breast enlargement [Recovered/Resolved]

NARRATIVE: CASE EVENT DATE: 201306
